FAERS Safety Report 12401042 (Version 2)
Quarter: 2016Q2

REPORT INFORMATION
  Report Type: Spontaneous
  Country: US (occurrence: US)
  Receive Date: 20160525
  Receipt Date: 20160525
  Transmission Date: 20160815
  Serious: No
  Sender: FDA-Public Use
  Company Number: US-SA-2015SA143235

PATIENT
  Age: 91 Year
  Sex: Male

DRUGS (3)
  1. SOLOSTAR [Concomitant]
     Active Substance: DEVICE
     Indication: TYPE 1 DIABETES MELLITUS
  2. NOVOLOG [Concomitant]
     Active Substance: INSULIN ASPART
  3. LANTUS SOLOSTAR [Suspect]
     Active Substance: INSULIN GLARGINE
     Indication: TYPE 1 DIABETES MELLITUS
     Dosage: DOSE:7 UNIT(S)
     Route: 065

REACTIONS (4)
  - Memory impairment [Unknown]
  - Visual acuity reduced [Unknown]
  - Injection site reaction [Unknown]
  - Psoriasis [Unknown]
